FAERS Safety Report 5738067-0 (Version None)
Quarter: 2008Q2

REPORT INFORMATION
  Report Type: 
  Country: None (occurrence: None)
  Receive Date: 20080514
  Receipt Date: 20080507
  Transmission Date: 20081010
  Serious: Yes (Hospitalization, Other)
  Sender: FDA-Public Use
  Company Number: US-PURDUE-USA_2007_0030821

PATIENT
  Sex: Female
  Weight: 91 kg

DRUGS (1)
  1. OXYCONTIN [Suspect]
     Indication: CYSTITIS RADIATION
     Dosage: 60 MG, TID
     Route: 048

REACTIONS (5)
  - CARDIAC MURMUR [None]
  - DRUG DEPENDENCE [None]
  - DRUG WITHDRAWAL SYNDROME [None]
  - HEPATITIS C [None]
  - TRANSFUSION [None]
